FAERS Safety Report 24557927 (Version 1)
Quarter: 2024Q4

REPORT INFORMATION
  Report Type: Spontaneous
  Country: US (occurrence: US)
  Receive Date: 20241028
  Receipt Date: 20241028
  Transmission Date: 20250114
  Serious: Yes (Other)
  Sender: PURDUE
  Company Number: US-PURDUE-USA-2024-0312839

PATIENT
  Age: 47 Year
  Sex: Male

DRUGS (10)
  1. DRONABINOL [Suspect]
     Active Substance: DRONABINOL
     Indication: Product used for unknown indication
     Dosage: 5 MILLIGRAM, CAPSULE
     Route: 048
     Dates: start: 20140710
  2. HYDROCODONE BITARTRATE AND ACETAMINOPHEN [Suspect]
     Active Substance: ACETAMINOPHEN\HYDROCODONE BITARTRATE
     Indication: Back injury
     Dosage: 7.5-500 MILLIGRAM
     Route: 048
     Dates: start: 20120131
  3. HYDROCODONE BITARTRATE AND ACETAMINOPHEN [Suspect]
     Active Substance: ACETAMINOPHEN\HYDROCODONE BITARTRATE
     Indication: Knee operation
     Dosage: 10-500 MILLIGRAM
     Route: 048
     Dates: start: 20120702
  4. HYDROCODONE BITARTRATE AND ACETAMINOPHEN [Suspect]
     Active Substance: ACETAMINOPHEN\HYDROCODONE BITARTRATE
     Dosage: 5-500 MILLIGRAM
     Route: 048
  5. HYDROCODONE BITARTRATE AND ACETAMINOPHEN [Suspect]
     Active Substance: ACETAMINOPHEN\HYDROCODONE BITARTRATE
     Dosage: 10-325 MILLIGRAM
     Route: 048
  6. HYDROCODONE BITARTRATE AND ACETAMINOPHEN [Suspect]
     Active Substance: ACETAMINOPHEN\HYDROCODONE BITARTRATE
     Dosage: UNK
     Route: 048
     Dates: end: 2015
  7. ACETAMINOPHEN\OXYCODONE HYDROCHLORIDE [Suspect]
     Active Substance: ACETAMINOPHEN\OXYCODONE HYDROCHLORIDE
     Indication: Product used for unknown indication
     Dosage: 5-325, MILLIGRAM
     Route: 048
  8. ACETAMINOPHEN\OXYCODONE HYDROCHLORIDE [Suspect]
     Active Substance: ACETAMINOPHEN\OXYCODONE HYDROCHLORIDE
     Dosage: 7.5-325, MILLIGRAM
     Route: 048
  9. MARINOL [Suspect]
     Active Substance: DRONABINOL
     Indication: Product used for unknown indication
     Dosage: UNK
     Route: 065
     Dates: start: 20140710
  10. HEROIN [Suspect]
     Active Substance: DIAMORPHINE
     Indication: Product used for unknown indication
     Dosage: UNK
     Route: 065

REACTIONS (5)
  - Overdose [Unknown]
  - Drug dependence [Unknown]
  - Drug abuse [Unknown]
  - Emotional distress [Unknown]
  - Infection [Unknown]

NARRATIVE: CASE EVENT DATE: 20151010
